FAERS Safety Report 9562941 (Version 1)
Quarter: 2013Q3

REPORT INFORMATION
  Report Type: Spontaneous
  Country: US (occurrence: US)
  Receive Date: 20130927
  Receipt Date: 20130927
  Transmission Date: 20140515
  Serious: Yes (Hospitalization, Other)
  Sender: FDA-Public Use
  Company Number: US-ELI_LILLY_AND_COMPANY-US201309006135

PATIENT
  Age: 14 Year
  Sex: Female

DRUGS (5)
  1. HUMALOG LISPRO [Suspect]
     Indication: DIABETES MELLITUS
     Dosage: UNK
     Route: 058
  2. HUMALOG LISPRO [Suspect]
     Dosage: 10 U, UNK
  3. HUMULIN NPH [Suspect]
     Indication: DIABETES MELLITUS
     Dosage: 13 U, BID
  4. HUMULIN NPH [Suspect]
     Dosage: 17 U, BID
  5. INSULIN HUMAN [Suspect]
     Indication: DIABETES MELLITUS

REACTIONS (9)
  - Blindness [Unknown]
  - Blood glucose fluctuation [Unknown]
  - Blood glucose increased [Unknown]
  - Atrioventricular block [Unknown]
  - Cardiac valve disease [Unknown]
  - Gallbladder disorder [Unknown]
  - Blood ketone body [Unknown]
  - Blood pressure increased [Unknown]
  - Heart rate increased [Unknown]
